FAERS Safety Report 25521110 (Version 1)
Quarter: 2025Q3

REPORT INFORMATION
  Report Type: Spontaneous
  Country: EU (occurrence: EU)
  Receive Date: 20250705
  Receipt Date: 20250705
  Transmission Date: 20251021
  Serious: Yes (Death, Other)
  Sender: AUROBINDO
  Company Number: EU-AFSSAPS-PP2025000694

PATIENT
  Age: 57 Year
  Sex: Female
  Weight: 66.6 kg

DRUGS (6)
  1. DIAZEPAM [Suspect]
     Active Substance: DIAZEPAM
     Indication: Anxiety
     Dosage: 10 MILLIGRAM, ONCE A DAY (10 MG/ 3 TIMES A DAY)
     Route: 048
     Dates: start: 20240612, end: 20240614
  2. ZOPICLONE [Suspect]
     Active Substance: ZOPICLONE
     Indication: Anxiety
     Dosage: 7.5 MILLIGRAM, ONCE A DAY (7.5 MG/ 3 TIMES A DAY)
     Route: 048
     Dates: end: 20240612
  3. TROPATEPINE HYDROCHLORIDE [Suspect]
     Active Substance: TROPATEPINE HYDROCHLORIDE
     Indication: Parkinsonism
     Dosage: 10 MILLIGRAM, ONCE A DAY (10 MG/DAY)
     Route: 048
     Dates: start: 20240612, end: 20240614
  4. CYAMEMAZINE [Suspect]
     Active Substance: CYAMEMAZINE
     Indication: Psychotic disorder
     Dosage: 25 GTT DROPS, TWO TIMES A DAY (25 DROPS 2 TIMES A DAY)
     Route: 048
     Dates: start: 20240612, end: 20240613
  5. ARIPIPRAZOLE [Suspect]
     Active Substance: ARIPIPRAZOLE
     Indication: Bipolar disorder
     Dosage: 15 MILLIGRAM, ONCE A DAY (15 MG PER DAY)
     Route: 048
     Dates: start: 201706, end: 20240614
  6. TRIMEPRAZINE [Suspect]
     Active Substance: TRIMEPRAZINE
     Indication: Insomnia
     Dosage: 20 MILLIGRAM, ONCE A DAY (20 MG PER DAY)
     Route: 048
     Dates: start: 20240612, end: 20240614

REACTIONS (3)
  - Cardio-respiratory arrest [Fatal]
  - Depressed level of consciousness [Fatal]
  - Somnolence [Fatal]

NARRATIVE: CASE EVENT DATE: 20240614
